FAERS Safety Report 5660206-0 (Version None)
Quarter: 2008Q1

REPORT INFORMATION
  Report Type: 
  Country: None (occurrence: None)
  Receive Date: 20080212
  Receipt Date: 20070521
  Transmission Date: 20080703
  Serious: Yes (Hospitalization)
  Sender: FDA-Public Use
  Company Number: MC200700317

PATIENT
  Age: 78 Year
  Sex: Female
  Weight: 93 kg

DRUGS (7)
  1. ANGIOMAX [Suspect]
     Indication: PERCUTANEOUS CORONARY INTERVENTION
     Dosage: 71.5 MG, BOLUS, IV BOLUS; 33.3 MG, IV DRIP
     Route: 040
     Dates: start: 20070411, end: 20070411
  2. ANGIOMAX [Suspect]
     Indication: PERCUTANEOUS CORONARY INTERVENTION
     Dosage: 71.5 MG, BOLUS, IV BOLUS; 33.3 MG, IV DRIP
     Route: 040
     Dates: start: 20070411, end: 20070411
  3. INTEGRILIN [Suspect]
     Indication: PERCUTANEOUS CORONARY INTERVENTION
     Dosage: 17 MG, BOLUS, IV BOLUS; 17 MG, BOLUS, IV BOLUS; 15 ML, HR, IV DRIP
     Route: 040
     Dates: start: 20070411, end: 20070411
  4. INTEGRILIN [Suspect]
     Indication: PERCUTANEOUS CORONARY INTERVENTION
     Dosage: 17 MG, BOLUS, IV BOLUS; 17 MG, BOLUS, IV BOLUS; 15 ML, HR, IV DRIP
     Route: 040
     Dates: start: 20070411, end: 20070411
  5. INTEGRILIN [Suspect]
     Indication: PERCUTANEOUS CORONARY INTERVENTION
     Dosage: 17 MG, BOLUS, IV BOLUS; 17 MG, BOLUS, IV BOLUS; 15 ML, HR, IV DRIP
     Route: 040
     Dates: start: 20070411, end: 20070411
  6. PLAVIX [Concomitant]
  7. ASPIRIN [Concomitant]

REACTIONS (2)
  - COAGULATION TIME ABNORMAL [None]
  - HAEMORRHAGE [None]
